FAERS Safety Report 5100194-9 (Version None)
Quarter: 2006Q3

REPORT INFORMATION
  Report Type: 
  Country: None (occurrence: None)
  Receive Date: 20060728
  Receipt Date: 20060109
  Transmission Date: 20061208
  Serious: No
  Sender: FDA-Public Use
  Company Number: 200609750

PATIENT
  Age: 49 Year
  Sex: Female
  Weight: 68.0396 kg

DRUGS (22)
  1. CARIMUNE [Suspect]
     Indication: DERMATOMYOSITIS
     Dosage: SEE IMAGE
     Route: 042
     Dates: start: 20051025, end: 20051025
  2. CARIMUNE [Suspect]
     Indication: DERMATOMYOSITIS
     Dosage: SEE IMAGE
     Route: 042
     Dates: start: 20051025, end: 20051025
  3. CARIMUNE [Suspect]
     Indication: DERMATOMYOSITIS
     Dosage: SEE IMAGE
     Route: 042
     Dates: start: 20051025, end: 20051025
  4. CARIMUNE [Suspect]
     Indication: DERMATOMYOSITIS
     Dosage: SEE IMAGE
     Route: 042
     Dates: start: 20051029, end: 20051029
  5. CARIMUNE [Suspect]
     Indication: DERMATOMYOSITIS
     Dosage: SEE IMAGE
     Route: 042
     Dates: start: 20051206, end: 20051206
  6. CARIMUNE [Suspect]
     Indication: DERMATOMYOSITIS
     Dosage: SEE IMAGE
     Route: 042
     Dates: start: 20051207, end: 20051207
  7. CARIMUNE [Suspect]
     Indication: DERMATOMYOSITIS
     Dosage: SEE IMAGE
     Route: 042
     Dates: start: 20051207, end: 20051207
  8. CARIMUNE [Suspect]
     Indication: DERMATOMYOSITIS
     Dosage: SEE IMAGE
     Route: 042
     Dates: start: 20051208, end: 20051208
  9. CARIMUNE [Suspect]
     Indication: DERMATOMYOSITIS
     Dosage: SEE IMAGE
     Route: 042
     Dates: start: 20051210, end: 20051210
  10. CARIMUNE [Suspect]
  11. CARIMUNE [Suspect]
  12. CARIMUNE [Suspect]
  13. CARIMUNE [Suspect]
  14. CARIMUNE [Suspect]
  15. CARIMUNE [Suspect]
  16. CARIMUNE [Suspect]
  17. CARIMUNE [Suspect]
  18. POLYGAM [Suspect]
     Indication: DERMATOMYOSITIS
     Dosage: SEE IMAGE
     Route: 042
     Dates: start: 20051025, end: 20051030
  19. POLYGAM [Suspect]
     Indication: DERMATOMYOSITIS
     Dosage: SEE IMAGE
     Route: 042
     Dates: start: 20051205, end: 20051210
  20. FOSAMAX [Concomitant]
  21. PREDNISONE TAB [Concomitant]
  22. FOLIC ACID [Concomitant]

REACTIONS (1)
  - LIVER FUNCTION TEST ABNORMAL [None]
